FAERS Safety Report 14984589 (Version 7)
Quarter: 2018Q3

REPORT INFORMATION
  Report Type: Spontaneous
  Country: US (occurrence: US)
  Receive Date: 20180607
  Receipt Date: 20180919
  Transmission Date: 20181010
  Serious: Yes (Other)
  Sender: FDA-Public Use
  Company Number: PHEH2018US021895

PATIENT
  Age: 27 Year
  Sex: Female
  Weight: 52.61 kg

DRUGS (3)
  1. ZOFRAN [Suspect]
     Active Substance: ONDANSETRON HYDROCHLORIDE
     Indication: PRODUCT USED FOR UNKNOWN INDICATION
     Route: 042
  2. ZOFRAN [Suspect]
     Active Substance: ONDANSETRON HYDROCHLORIDE
     Indication: PRODUCT USED FOR UNKNOWN INDICATION
     Route: 048
  3. ONDANSETRON [Suspect]
     Active Substance: ONDANSETRON
     Indication: VOMITING IN PREGNANCY
     Dosage: 04 MG, Q8H
     Route: 065
     Dates: start: 201505, end: 201510

REACTIONS (16)
  - Hydronephrosis [Unknown]
  - Injury [Unknown]
  - Arthralgia [Unknown]
  - Pruritus [Unknown]
  - Premature labour [Unknown]
  - Ear pain [Unknown]
  - Pelvic pain [Unknown]
  - Abdominal pain [Unknown]
  - Stress [Unknown]
  - Product use in unapproved indication [Unknown]
  - Nephrolithiasis [Unknown]
  - Emotional distress [Unknown]
  - Viral infection [Unknown]
  - Premature delivery [Unknown]
  - Neoplasm skin [Unknown]
  - Maternal exposure during pregnancy [Unknown]

NARRATIVE: CASE EVENT DATE: 20160311
